FAERS Safety Report 13407610 (Version 1)
Quarter: 2017Q2

REPORT INFORMATION
  Report Type: Spontaneous
  Country: CA (occurrence: CA)
  Receive Date: 20170406
  Receipt Date: 20170406
  Transmission Date: 20170830
  Serious: Yes (Hospitalization)
  Sender: FDA-Public Use
  Company Number: CA-HLSUS-2017-CA-000285

PATIENT
  Age: 76 Year
  Sex: Female
  Weight: 63 kg

DRUGS (17)
  1. DOCUSATE CAPSULE USP [Concomitant]
  2. LACTULOSE. [Concomitant]
     Active Substance: LACTULOSE
  3. LITHIUM. [Concomitant]
     Active Substance: LITHIUM
  4. ACETAMINOPHEN. [Concomitant]
     Active Substance: ACETAMINOPHEN
  5. CLOZAPINE. [Suspect]
     Active Substance: CLOZAPINE
     Indication: SCHIZOAFFECTIVE DISORDER
     Dosage: 50 MG ONCE DAILY
  6. BISACODYL. [Concomitant]
     Active Substance: BISACODYL
  7. CETIRIZINE [Concomitant]
     Active Substance: CETIRIZINE HYDROCHLORIDE
  8. PSYLLIUM HUSK [Concomitant]
     Active Substance: PSYLLIUM HUSK
  9. ZOPICLONE [Concomitant]
     Active Substance: ZOPICLONE
  10. AMOXICILLIN/CLAVULANATE [Concomitant]
     Active Substance: AMOXICILLIN\CLAVULANATE POTASSIUM
  11. SENNOSIDES. [Concomitant]
     Active Substance: SENNOSIDES
  12. PANTOPRAZOLE [Concomitant]
     Active Substance: PANTOPRAZOLE
  13. QUETIAPINE. [Concomitant]
     Active Substance: QUETIAPINE
  14. ROSUVASTATIN. [Concomitant]
     Active Substance: ROSUVASTATIN
  15. BECLOMETHASONE AQUEOUS NASAL SPRAY 50MCG/METERED DOSE [Concomitant]
  16. CYANOCOBALAMIN. [Concomitant]
     Active Substance: CYANOCOBALAMIN
  17. CHOLECALCIFEROL [Concomitant]
     Active Substance: CHOLECALCIFEROL

REACTIONS (7)
  - Electrocardiogram ST segment elevation [Recovered/Resolved]
  - Nausea [Recovered/Resolved]
  - Influenza like illness [Recovered/Resolved]
  - Vomiting [Recovered/Resolved]
  - Malaise [Recovered/Resolved]
  - Pyrexia [Recovered/Resolved]
  - Troponin increased [Recovered/Resolved]
